FAERS Safety Report 9414300 (Version 1)
Quarter: 2013Q3

REPORT INFORMATION
  Report Type: Spontaneous
  Country: GB (occurrence: None)
  Receive Date: 20130717
  Receipt Date: 20130717
  Transmission Date: 20140515
  Serious: Yes (Other)
  Sender: FDA-Public Use
  Company Number: 2013-2905

PATIENT
  Age: 9 Year
  Sex: Male

DRUGS (1)
  1. INCRELEX (INCRELEX 10MG/ML) (MECASERMIN) (MECASERMIN) [Suspect]
     Indication: PRODUCT USED FOR UNKNOWN INDICATION
     Dosage: 4 MG (2 MG, 2 IN 1 D),

REACTIONS (1)
  - Pneumonia [None]
